FAERS Safety Report 7233506-0 (Version None)
Quarter: 2011Q1

REPORT INFORMATION
  Report Type: 
  Country: None (occurrence: None)
  Receive Date: 20110119
  Receipt Date: 20110110
  Transmission Date: 20110831
  Serious: Yes (Other)
  Sender: FDA-Public Use
  Company Number: US-RB-019068-11

PATIENT
  Age: 77 Year
  Sex: Female

DRUGS (1)
  1. MUCINEX [Suspect]
     Indication: NASOPHARYNGITIS
     Route: 048

REACTIONS (3)
  - HALLUCINATION [None]
  - FEELING ABNORMAL [None]
  - VISION BLURRED [None]
